FAERS Safety Report 5368534-3 (Version None)
Quarter: 2007Q2

REPORT INFORMATION
  Report Type: 
  Country: None (occurrence: None)
  Receive Date: 20070620
  Receipt Date: 20061218
  Transmission Date: 20071010
  Serious: No
  Sender: FDA-Public Use
  Company Number: 002#2#2006-00320

PATIENT
  Age: 66 Year
  Sex: Male
  Weight: 92.9874 kg

DRUGS (3)
  1. UNIVASC [Suspect]
     Indication: HYPERTENSION
     Dosage: 15MG, 1 IN 1 D, ORAL
     Route: 048
  2. IBUPROFEN [Concomitant]
  3. LOVASTATIN [Concomitant]

REACTIONS (6)
  - ARTHRALGIA [None]
  - BLOOD PRESSURE INADEQUATELY CONTROLLED [None]
  - DRUG INEFFECTIVE [None]
  - FATIGUE [None]
  - FLUSHING [None]
  - PHARMACEUTICAL PRODUCT COMPLAINT [None]
